FAERS Safety Report 6433435-6 (Version None)
Quarter: 2009Q4

REPORT INFORMATION
  Report Type: 
  Country: None (occurrence: None)
  Receive Date: 20091106
  Receipt Date: 20091106
  Transmission Date: 20100525
  Serious: No
  Sender: FDA-Public Use
  Company Number: None

PATIENT
  Age: 61 Year
  Sex: Female
  Weight: 58.0604 kg

DRUGS (3)
  1. GABAPENTIN [Suspect]
     Indication: NERVE INJURY
     Dosage: 300MG 3X DAILY /3 DAYS PO
     Route: 048
     Dates: start: 20091027, end: 20091105
  2. GABAPENTIN [Suspect]
     Indication: PRURITUS
     Dosage: 300MG 3X DAILY /3 DAYS PO
     Route: 048
     Dates: start: 20091027, end: 20091105
  3. GABAPENTIN [Suspect]
     Dosage: 900 MG...3X DAILY PO
     Route: 048
     Dates: start: 20091027, end: 20091105

REACTIONS (7)
  - ASTHENIA [None]
  - CONVULSION [None]
  - DYSKINESIA [None]
  - FEELING HOT [None]
  - HEADACHE [None]
  - MEMORY IMPAIRMENT [None]
  - TREMOR [None]
